FAERS Safety Report 9643741 (Version 1)
Quarter: 2013Q4

REPORT INFORMATION
  Report Type: Spontaneous
  Country: US (occurrence: US)
  Receive Date: 20131024
  Receipt Date: 20131024
  Transmission Date: 20140711
  Serious: Yes (Other)
  Sender: FDA-Public Use
  Company Number: US-PFIZER INC-2013303413

PATIENT
  Age: 54 Year
  Sex: Female
  Weight: 133 kg

DRUGS (5)
  1. GENOTROPIN [Suspect]
     Indication: HYPOPITUITARISM
     Dosage: 5 MG, UNK
     Dates: start: 20051127
  2. LEVOTHYROXINE [Concomitant]
     Indication: HYPOTHYROIDISM
     Dosage: 150 UG, 1X/DAY
  3. RAMIPRIL [Concomitant]
     Indication: BENIGN INTRACRANIAL HYPERTENSION
     Dosage: 2.5 MG, 1X/DAY
  4. PLAVIX [Concomitant]
     Dosage: UNK
  5. PREDNISONE [Concomitant]
     Indication: GLUCOCORTICOID DEFICIENCY
     Dosage: 5 MG, (SPLITTING THE TABLET OF 5MG)

REACTIONS (1)
  - Cerebrovascular accident [Unknown]
